FAERS Safety Report 15685557 (Version 1)
Quarter: 2018Q4

REPORT INFORMATION
  Report Type: Spontaneous
  Country: US (occurrence: US)
  Receive Date: 20181204
  Receipt Date: 20181204
  Transmission Date: 20190205
  Serious: No
  Sender: FDA-Public Use
  Company Number: US-PFIZER INC-2018490217

PATIENT
  Age: 76 Year
  Sex: Female
  Weight: 79.38 kg

DRUGS (1)
  1. IBRANCE [Suspect]
     Active Substance: PALBOCICLIB
     Indication: BREAST CANCER METASTATIC
     Dosage: 125 MG, CYCLIC (ONCE A DAY FOR 20 DAYS SHE THINKS AND OFF 5 DAYS SHE THINKS, OR MAYBE 7 DAYS)

REACTIONS (8)
  - Diarrhoea [Unknown]
  - Tooth discolouration [Not Recovered/Not Resolved]
  - Vomiting [Unknown]
  - Tooth fracture [Not Recovered/Not Resolved]
  - Tooth loss [Unknown]
  - Feeding disorder [Unknown]
  - Dental caries [Unknown]
  - Malaise [Unknown]

NARRATIVE: CASE EVENT DATE: 201811
